FAERS Safety Report 23826581 (Version 1)
Quarter: 2024Q2

REPORT INFORMATION
  Report Type: Spontaneous
  Country: US (occurrence: None)
  Receive Date: 20240506
  Receipt Date: 20240506
  Transmission Date: 20240716
  Serious: Yes (Disabling, Other)
  Sender: FDA-Public Use
  Company Number: None

PATIENT
  Age: 77 Year
  Sex: Male
  Weight: 85.5 kg

DRUGS (12)
  1. SYFOVRE [Suspect]
     Active Substance: PEGCETACOPLAN
     Indication: Dry age-related macular degeneration
     Route: 047
     Dates: start: 20230613, end: 20230818
  2. GABAPENTIN [Concomitant]
     Active Substance: GABAPENTIN
  3. HYDROCHLOROTHIAZIDE [Concomitant]
     Active Substance: HYDROCHLOROTHIAZIDE
  4. ALLOPURINOL [Concomitant]
     Active Substance: ALLOPURINOL
  5. ATORVASTATIN CALCIUM [Concomitant]
     Active Substance: ATORVASTATIN CALCIUM
  6. CLOPIDOGREL BISULFATE [Concomitant]
     Active Substance: CLOPIDOGREL BISULFATE
  7. DULOXETINE HCL EC [Concomitant]
  8. EZETIMIBE [Concomitant]
     Active Substance: EZETIMIBE
  9. MULTIVIT/OPHTH AREDS2/LUTE/ZEAX [Concomitant]
  10. AMLODIPINE BESYLATE [Concomitant]
     Active Substance: AMLODIPINE BESYLATE
  11. VITAMIN D [Concomitant]
     Active Substance: VITAMIN D NOS
  12. ASPIRIN [Concomitant]
     Active Substance: ASPIRIN

REACTIONS (10)
  - Eye pain [None]
  - Retinal artery thrombosis [None]
  - Impaired driving ability [None]
  - Ocular hyperaemia [None]
  - Ocular discomfort [None]
  - Eyelid ptosis [None]
  - Visual impairment [None]
  - Loss of personal independence in daily activities [None]
  - Vitreous haemorrhage [None]
  - Product use complaint [None]

NARRATIVE: CASE EVENT DATE: 20230818
